FAERS Safety Report 6695966-3 (Version None)
Quarter: 2010Q2

REPORT INFORMATION
  Report Type: 
  Country: None (occurrence: None)
  Receive Date: 20100426
  Receipt Date: 20100420
  Transmission Date: 20101027
  Serious: Yes (Other)
  Sender: FDA-Public Use
  Company Number: DE-SANOFI-AVENTIS-2010SA022904

PATIENT
  Age: 56 Year
  Sex: Male

DRUGS (1)
  1. ARAVA [Suspect]
     Indication: PSORIASIS
     Route: 048
     Dates: start: 20100401

REACTIONS (1)
  - DEMENTIA [None]
